FAERS Safety Report 23268464 (Version 1)
Quarter: 2023Q4

REPORT INFORMATION
  Report Type: Report from Study
  Country: BR (occurrence: BR)
  Receive Date: 20231206
  Receipt Date: 20231206
  Transmission Date: 20240110
  Serious: Yes (Hospitalization, Other)
  Sender: FDA-Public Use
  Company Number: BR-JNJFOC-20230818767

PATIENT
  Age: 75 Year
  Sex: Female
  Weight: 73 kg

DRUGS (8)
  1. REMICADE [Suspect]
     Active Substance: INFLIXIMAB
     Indication: Rheumatoid arthritis
     Dosage: REPORTED AS USED UNTIL APR-2021 [SIC]
     Route: 041
     Dates: start: 202110
  2. REMICADE [Suspect]
     Active Substance: INFLIXIMAB
     Route: 041
     Dates: start: 20220225
  3. INFLIXIMAB [Suspect]
     Active Substance: INFLIXIMAB
     Indication: Rheumatoid arthritis
     Route: 041
     Dates: start: 20231004
  4. INFLIXIMAB [Suspect]
     Active Substance: INFLIXIMAB
     Indication: Rheumatoid arthritis
     Route: 065
     Dates: start: 202305
  5. ATENOLOL [Concomitant]
     Active Substance: ATENOLOL
  6. LOSARTAN [Concomitant]
     Active Substance: LOSARTAN
  7. PREGABALIN [Concomitant]
     Active Substance: PREGABALIN
  8. ACYCLOVIR [Concomitant]
     Active Substance: ACYCLOVIR
     Dosage: FOR 3 MONTHS

REACTIONS (7)
  - Herpes zoster [Recovering/Resolving]
  - Cataract [Recovering/Resolving]
  - Rheumatoid arthritis [Recovering/Resolving]
  - Sciatic nerve palsy [Recovering/Resolving]
  - Joint swelling [Recovering/Resolving]
  - Muscle strain [Recovering/Resolving]
  - Drug ineffective [Unknown]
